FAERS Safety Report 14927780 (Version 2)
Quarter: 2018Q3

REPORT INFORMATION
  Report Type: Other
  Country: DE (occurrence: DE)
  Receive Date: 20180523
  Receipt Date: 20180817
  Transmission Date: 20181010
  Serious: Yes (Life-Threatening, Hospitalization, Other)
  Sender: FDA-Public Use
  Company Number: DE-LUPIN PHARMACEUTICALS INC.-2018-03725

PATIENT
  Age: 62 Year
  Sex: Female
  Weight: 87 kg

DRUGS (13)
  1. QUETIAPINE. [Suspect]
     Active Substance: QUETIAPINE
     Dosage: 175 MG, UNK
     Route: 048
     Dates: start: 20180320
  2. QUETIAPINE. [Suspect]
     Active Substance: QUETIAPINE
     Dosage: 125 MG, UNK
     Route: 048
     Dates: start: 20180319
  3. TAVOR (LORAZEPAM) [Concomitant]
     Active Substance: LORAZEPAM
     Dosage: 1 MG, QD
     Route: 048
     Dates: start: 20180322
  4. QUETIAPINE. [Suspect]
     Active Substance: QUETIAPINE
     Indication: DEPRESSION
     Dosage: 25 MG, UNK
     Route: 048
     Dates: start: 20180312, end: 20180331
  5. ENALAPRIL [Concomitant]
     Active Substance: ENALAPRIL
     Indication: HYPERTENSION
     Dosage: 2.5 MG, QD (TAKING FOR WEEKS)
     Route: 048
  6. QUETIAPINE. [Suspect]
     Active Substance: QUETIAPINE
     Dosage: 200 MG, UNK
     Route: 048
     Dates: start: 20180321
  7. THYRONAJOD [Concomitant]
     Active Substance: LEVOTHYROXINE SODIUM\POTASSIUM IODIDE
     Indication: THYROID DISORDER
     Dosage: UNK
     Route: 048
  8. BISOPROLOL [Concomitant]
     Active Substance: BISOPROLOL
     Indication: HYPERTENSION
     Dosage: 5 MG, QD
     Route: 048
  9. MIRTAZAPIN [Concomitant]
     Active Substance: MIRTAZAPINE
     Indication: DEPRESSION
     Dosage: 45 MG, UNK
     Route: 048
     Dates: start: 20180227, end: 20180417
  10. QUETIAPINE. [Suspect]
     Active Substance: QUETIAPINE
     Dosage: 75 MG, UNK
     Route: 048
     Dates: start: 20180313, end: 20180318
  11. TAVOR (LORAZEPAM) [Concomitant]
     Active Substance: LORAZEPAM
     Indication: DEPRESSION
     Dosage: 0.75 MG, UNK
     Route: 048
     Dates: start: 20180315
  12. QUETIAPINE. [Suspect]
     Active Substance: QUETIAPINE
     Dosage: 175 MG, UNK
     Route: 048
     Dates: start: 20180322, end: 20180328
  13. QUETIAPINE. [Suspect]
     Active Substance: QUETIAPINE
     Dosage: 200 MG, QD
     Route: 048
     Dates: start: 20180329, end: 20180330

REACTIONS (4)
  - Pulmonary embolism [Recovered/Resolved]
  - Cardiac arrest [Recovered/Resolved]
  - Deep vein thrombosis [Recovered/Resolved]
  - Resuscitation [Recovered/Resolved]

NARRATIVE: CASE EVENT DATE: 20180331
